FAERS Safety Report 6911924-5 (Version None)
Quarter: 2010Q3

REPORT INFORMATION
  Report Type: 
  Country: None (occurrence: None)
  Receive Date: 20100806
  Receipt Date: 20070906
  Transmission Date: 20110219
  Serious: No
  Sender: FDA-Public Use
  Company Number: US-PFIZER INC-2007075941

PATIENT
  Age: 78 Year
  Sex: Male
  Weight: 63.636 kg

DRUGS (3)
  1. DILANTIN [Suspect]
     Indication: EPILEPSY
  2. SAW PALMETTO [Concomitant]
  3. LIPITOR [Concomitant]

REACTIONS (2)
  - BREATH ODOUR [None]
  - SKIN ODOUR ABNORMAL [None]
